FAERS Safety Report 10723854 (Version 1)
Quarter: 2015Q1

REPORT INFORMATION
  Report Type: Spontaneous
  Country: US (occurrence: None)
  Receive Date: 20150116
  Receipt Date: 20150116
  Transmission Date: 20150721
  Serious: No
  Sender: FDA-Public Use
  Company Number: None

PATIENT
  Age: 68 Year
  Sex: Male
  Weight: 87.09 kg

DRUGS (1)
  1. TRAMADOL HCL [Suspect]
     Active Substance: TRAMADOL HYDROCHLORIDE
     Indication: ARTHRALGIA
     Dosage: 1 TAB
     Route: 048
     Dates: start: 20150113

REACTIONS (3)
  - Anxiety [None]
  - Blood pressure increased [None]
  - Agitation [None]

NARRATIVE: CASE EVENT DATE: 20150113
